FAERS Safety Report 25743919 (Version 1)
Quarter: 2025Q3

REPORT INFORMATION
  Report Type: Spontaneous
  Country: CN (occurrence: CN)
  Receive Date: 20250831
  Receipt Date: 20250831
  Transmission Date: 20251020
  Serious: Yes (Hospitalization)
  Sender: ABBVIE
  Company Number: CN-ABBVIE-6434950

PATIENT
  Age: 44 Year
  Sex: Female
  Weight: 57 kg

DRUGS (4)
  1. VENETOCLAX [Suspect]
     Active Substance: VENETOCLAX
     Indication: Chemotherapy
     Route: 048
     Dates: start: 20250802, end: 20250807
  2. VENETOCLAX [Suspect]
     Active Substance: VENETOCLAX
     Indication: Chemotherapy
     Route: 048
     Dates: start: 20250801, end: 20250801
  3. CYTARABINE [Suspect]
     Active Substance: CYTARABINE
     Indication: Chemotherapy
     Dosage: INTRAVENOUS DRIP
     Route: 065
     Dates: start: 20250802, end: 20250803
  4. METHOTREXATE [Suspect]
     Active Substance: METHOTREXATE
     Indication: Chemotherapy
     Dosage: INTRAVENOUS DRIP
     Route: 065
     Dates: start: 20250801, end: 20250801

REACTIONS (11)
  - Myelosuppression [Recovering/Resolving]
  - Nausea [Unknown]
  - Pneumonia [Recovering/Resolving]
  - Dysphagia [Unknown]
  - Vomiting [Unknown]
  - Granulocyte count decreased [Recovering/Resolving]
  - Pyrexia [Recovering/Resolving]
  - Dry throat [Recovering/Resolving]
  - Oropharyngeal pain [Recovering/Resolving]
  - Cough [Recovering/Resolving]
  - Rales [Unknown]

NARRATIVE: CASE EVENT DATE: 20250801
